FAERS Safety Report 6280500-2 (Version None)
Quarter: 2009Q3

REPORT INFORMATION
  Report Type: 
  Country: None (occurrence: None)
  Receive Date: 20090724
  Receipt Date: 20080909
  Transmission Date: 20100115
  Serious: No
  Sender: FDA-Public Use
  Company Number: A0741388A

PATIENT
  Age: 50 Year
  Sex: Male

DRUGS (7)
  1. AVANDIA [Suspect]
     Dosage: 2MG TWICE PER DAY
     Route: 048
     Dates: start: 20080201
  2. AVANDIA [Suspect]
     Dosage: 4MG VARIABLE DOSE
     Route: 048
     Dates: start: 20080501
  3. PRANDIN [Concomitant]
  4. PRILOSEC [Concomitant]
  5. INDOCIN [Concomitant]
  6. ALEVE [Concomitant]
  7. ASA WITH CODEINE [Concomitant]

REACTIONS (3)
  - BLOOD GLUCOSE FLUCTUATION [None]
  - DRUG INEFFECTIVE [None]
  - PRODUCT QUALITY ISSUE [None]
